FAERS Safety Report 6832593-9 (Version None)
Quarter: 2010Q3

REPORT INFORMATION
  Report Type: 
  Country: None (occurrence: None)
  Receive Date: 20100712
  Receipt Date: 20070317
  Transmission Date: 20110219
  Serious: No
  Sender: FDA-Public Use
  Company Number: US-PFIZER INC-2007021466

PATIENT
  Sex: Female
  Weight: 53.07 kg

DRUGS (6)
  1. CHANTIX [Suspect]
     Indication: SMOKING CESSATION THERAPY
     Dates: start: 20070310
  2. ACETYLSALICYLIC ACID [Concomitant]
  3. CITRUCEL [Concomitant]
  4. NAPROXEN [Concomitant]
  5. FOSAMAX [Concomitant]
  6. VITAMINS [Concomitant]

REACTIONS (2)
  - CONSTIPATION [None]
  - FLATULENCE [None]
